FAERS Safety Report 4795685-4 (Version None)
Quarter: 2005Q3

REPORT INFORMATION
  Report Type: 
  Country: None (occurrence: None)
  Receive Date: 20050916
  Receipt Date: 20050621
  Transmission Date: 20060218
  Serious: Yes (Hospitalization)
  Sender: FDA-Public Use
  Company Number: US-JNJFOC-20050606149

PATIENT
  Age: 76 Year
  Sex: Male

DRUGS (7)
  1. TOPAMAX [Suspect]
     Indication: CONVULSION
     Dosage: 100 MG, 1 IN 1 DAY, ORAL; 100 MG, 2 IN 1 DAY, ORAL
     Route: 048
  2. TOPAMAX [Suspect]
     Indication: HEADACHE
     Dosage: 100 MG, 1 IN 1 DAY, ORAL; 100 MG, 2 IN 1 DAY, ORAL
     Route: 048
  3. NASACORT [Concomitant]
  4. NEXIUM [Concomitant]
  5. COMBIVENT [Concomitant]
  6. FLONASE [Concomitant]
  7. CALAN [Concomitant]

REACTIONS (2)
  - CONVULSION [None]
  - HEADACHE [None]
